FAERS Safety Report 16779715 (Version 1)
Quarter: 2019Q3

REPORT INFORMATION
  Report Type: Spontaneous
  Country: AT (occurrence: AT)
  Receive Date: 20190906
  Receipt Date: 20190906
  Transmission Date: 20191005
  Serious: Yes (Death, Hospitalization, Other)
  Sender: FDA-Public Use
  Company Number: AT-NXDC-GLE-0037-2019

PATIENT
  Age: 64 Year

DRUGS (1)
  1. GLIOLAN [Suspect]
     Active Substance: AMINOLEVULINIC ACID HYDROCHLORIDE
     Indication: BRAIN NEOPLASM

REACTIONS (2)
  - Cardiac failure [Fatal]
  - Cerebral haemorrhage [Fatal]
